FAERS Safety Report 5683588-2 (Version None)
Quarter: 2008Q1

REPORT INFORMATION
  Report Type: 
  Country: None (occurrence: None)
  Receive Date: 20080326
  Receipt Date: 20070530
  Transmission Date: 20080703
  Serious: Yes (Hospitalization)
  Sender: FDA-Public Use
  Company Number: 6034081

PATIENT
  Sex: Female

DRUGS (1)
  1. METFORMIN HCL [Suspect]
     Indication: TYPE 2 DIABETES MELLITUS
     Dosage: 1500 MG (500 MG, 3 IN 1 D) ORAL
     Route: 048

REACTIONS (14)
  - BLOOD GLUCOSE INCREASED [None]
  - BLOOD PRESSURE DIASTOLIC DECREASED [None]
  - CONFUSIONAL STATE [None]
  - DEHYDRATION [None]
  - DYSPHAGIA [None]
  - FALL [None]
  - LACTIC ACIDOSIS [None]
  - MALAISE [None]
  - NASOPHARYNGITIS [None]
  - RENAL FAILURE ACUTE [None]
  - SOMNOLENCE [None]
  - TACHYCARDIA [None]
  - TACHYPNOEA [None]
  - WEIGHT DECREASED [None]
